FAERS Safety Report 24455219 (Version 2)
Quarter: 2024Q4

REPORT INFORMATION
  Report Type: Report from Study
  Country: CL (occurrence: CL)
  Receive Date: 20241017
  Receipt Date: 20241018
  Transmission Date: 20250115
  Serious: No
  Sender: ROCHE
  Company Number: CL-ROCHE-3478455

PATIENT
  Sex: Male
  Weight: 85.0 kg

DRUGS (1)
  1. RITUXIMAB [Suspect]
     Active Substance: RITUXIMAB
     Indication: Multiple sclerosis
     Dosage: ON 08/SEPTEMBER/2023, HE RECEIVED HIS SECOND DOSE.
     Route: 065
     Dates: start: 20230310

REACTIONS (2)
  - Off label use [Unknown]
  - No adverse event [Unknown]
